FAERS Safety Report 20121793 (Version 1)
Quarter: 2021Q4

REPORT INFORMATION
  Report Type: Spontaneous
  Country: CN (occurrence: CN)
  Receive Date: 20211128
  Receipt Date: 20211128
  Transmission Date: 20220304
  Serious: Yes (Other)
  Sender: FDA-Public Use
  Company Number: CN-009507513-2111CHN008588

PATIENT
  Age: 17 Year
  Sex: Female
  Weight: 47.5 kg

DRUGS (2)
  1. CANCIDAS [Suspect]
     Active Substance: CASPOFUNGIN ACETATE
     Indication: Symptomatic treatment
     Dosage: 50 MILLIGRAM, QD
     Route: 048
     Dates: start: 20210927, end: 20211009
  2. SULFAMETHOXAZOLE [Suspect]
     Active Substance: SULFAMETHOXAZOLE
     Indication: Symptomatic treatment
     Dosage: 1.44 GRAM, BID
     Route: 048
     Dates: start: 20210927, end: 20211009

REACTIONS (2)
  - Liver injury [Recovering/Resolving]
  - Incorrect route of product administration [Unknown]

NARRATIVE: CASE EVENT DATE: 20210927
